FAERS Safety Report 18513396 (Version 4)
Quarter: 2020Q4

REPORT INFORMATION
  Report Type: Report from Study
  Country: TW (occurrence: TW)
  Receive Date: 20201118
  Receipt Date: 20201210
  Transmission Date: 20210114
  Serious: Yes (Hospitalization)
  Sender: FDA-Public Use
  Company Number: TW-BIOGEN-2020BI00946828

PATIENT
  Age: 1 Year
  Sex: Female
  Weight: 10.3 kg

DRUGS (3)
  1. SPINRAZA [Suspect]
     Active Substance: NUSINERSEN
     Dosage: 3 LOADING DOSES ON DAY 0, 14, 28, AND 63. MAINTENANCE DOSE ADMINISTERED ONCE EVERY 4
     Route: 037
     Dates: start: 20201126
  2. SPINRAZA [Suspect]
     Active Substance: NUSINERSEN
     Dosage: 4 LOADING DOSES ON DAY 0, 14, 28, AND 63. MAINTENANCE DOSE ADMINISTERED ONCE EVERY 4
     Route: 037
     Dates: start: 20201112
  3. SPINRAZA [Suspect]
     Active Substance: NUSINERSEN
     Indication: SPINAL MUSCULAR ATROPHY
     Dosage: DAY 0 LOADING DOSE?LOADING DOSES ON DAY 0, 14, 28, AND 63. MAINTENANCE DOSE ADMINISTERED ONCE EVE...
     Route: 037
     Dates: start: 20201029

REACTIONS (3)
  - Cytomegalovirus infection [Recovered/Resolved]
  - Aspartate aminotransferase increased [Recovered/Resolved]
  - Alanine aminotransferase increased [Recovered/Resolved]

NARRATIVE: CASE EVENT DATE: 20201111
